FAERS Safety Report 11719976 (Version 3)
Quarter: 2016Q3

REPORT INFORMATION
  Report Type: Report from Study
  Country: DE (occurrence: DE)
  Receive Date: 20151110
  Receipt Date: 20160728
  Transmission Date: 20161109
  Serious: Yes (Hospitalization)
  Sender: FDA-Public Use
  Company Number: DE-ROCHE-1656727

PATIENT
  Age: 81 Year
  Sex: Female

DRUGS (2)
  1. RITUXIMAB [Suspect]
     Active Substance: RITUXIMAB
     Indication: RHEUMATOID ARTHRITIS
     Dosage: LAST DOSE OF 500 MG 13/APR/2015
     Route: 042
     Dates: start: 201409
  2. METHOTREXATE. [Suspect]
     Active Substance: METHOTREXATE
     Indication: RHEUMATOID ARTHRITIS
     Route: 065
     Dates: start: 201506

REACTIONS (2)
  - Atrial fibrillation [Unknown]
  - Femoral neck fracture [Recovered/Resolved]

NARRATIVE: CASE EVENT DATE: 201507
